FAERS Safety Report 6635016-8 (Version None)
Quarter: 2010Q1

REPORT INFORMATION
  Report Type: 
  Country: None (occurrence: None)
  Receive Date: 20100315
  Receipt Date: 20100305
  Transmission Date: 20100710
  Serious: No
  Sender: FDA-Public Use
  Company Number: GB-ABBOTT-09P-167-0611238-00

PATIENT
  Sex: Male
  Weight: 73 kg

DRUGS (1)
  1. HUMIRA [Suspect]
     Indication: PSORIASIS
     Dates: start: 20091001

REACTIONS (2)
  - CONJUNCTIVITIS [None]
  - MEIBOMIANITIS [None]
